FAERS Safety Report 25115084 (Version 1)
Quarter: 2025Q1

REPORT INFORMATION
  Report Type: Spontaneous
  Country: US (occurrence: None)
  Receive Date: 20250324
  Receipt Date: 20250324
  Transmission Date: 20250409
  Serious: No
  Sender: FDA-CTU
  Company Number: None

PATIENT

DRUGS (2)
  1. LISINOPRIL [Suspect]
     Active Substance: LISINOPRIL
  2. BUPROPION [Suspect]
     Active Substance: BUPROPION

REACTIONS (7)
  - Cerebrovascular accident [None]
  - Blood creatinine increased [None]
  - Fatigue [None]
  - Somnolence [None]
  - Diarrhoea [None]
  - Nightmare [None]
  - Depression [None]
